FAERS Safety Report 4467876-3 (Version None)
Quarter: 2004Q4

REPORT INFORMATION
  Report Type: 
  Country: None (occurrence: None)
  Receive Date: 20041004
  Receipt Date: 20041004
  Transmission Date: 20050328
  Serious: Yes (Death)
  Sender: FDA-Public Use
  Company Number: None

PATIENT
  Age: 5 Year
  Sex: Male
  Weight: 23 kg

DRUGS (6)
  1. DEXAMETHASONE [Suspect]
     Indication: ACUTE LYMPHOCYTIC LEUKAEMIA
     Dates: start: 20040621, end: 20040718
  2. CYTARABINE [Suspect]
     Indication: ACUTE LYMPHOCYTIC LEUKAEMIA
     Dosage: INTRATHECAL
     Route: 037
     Dates: start: 20040621, end: 20040718
  3. VINCRISTINE [Suspect]
     Indication: ACUTE LYMPHOCYTIC LEUKAEMIA
     Dates: start: 20040621, end: 20040718
  4. PEG-ASPARAGINASE [Suspect]
     Indication: ACUTE LYMPHOCYTIC LEUKAEMIA
     Dates: start: 20040621, end: 20040718
  5. METHOTREXATE [Suspect]
     Indication: ACUTE LYMPHOCYTIC LEUKAEMIA
     Dosage: INTRATHECAL
     Route: 037
     Dates: start: 20040621, end: 20040718
  6. LEFT SUBCLAVIAN 6.6 FRENCH SINGLE LUMEN BROVIAC CATHETER [Concomitant]

REACTIONS (8)
  - ATRIAL THROMBOSIS [None]
  - CARDIAC ARREST [None]
  - COMA [None]
  - EYE ROLLING [None]
  - HAEMODYNAMIC INSTABILITY [None]
  - PLATELET COUNT DECREASED [None]
  - PULMONARY EMBOLISM [None]
  - SKIN DISCOLOURATION [None]
